FAERS Safety Report 4578865-2 (Version None)
Quarter: 2005Q1

REPORT INFORMATION
  Report Type: 
  Country: None (occurrence: None)
  Receive Date: 20050211
  Receipt Date: 20050105
  Transmission Date: 20050727
  Serious: Yes (Hospitalization)
  Sender: FDA-Public Use
  Company Number: HQWYE429007JAN05

PATIENT
  Sex: Female
  Weight: 50.5 kg

DRUGS (7)
  1. ETANERCEPT [Suspect]
     Indication: RHEUMATOID ARTHRITIS
     Route: 058
     Dates: start: 20010530
  2. PREDNISOLONE [Suspect]
     Indication: RHEUMATOID ARTHRITIS
     Dosage: TOTAL DAILY DOSE OF 5 MG
     Dates: start: 20010621
  3. LOXOPROFEN [Suspect]
     Indication: RHEUMATOID ARTHRITIS
     Dosage: TOTAL DAILY DOSE OF 90 MG
     Dates: start: 20020104
  4. VOLTAREN [Suspect]
     Indication: RHEUMATOID ARTHRITIS
     Dosage: TOTAL DAILY DOSE OF 50 MG
     Dates: start: 20010822, end: 20040721
  5. CYTOTEC [Concomitant]
     Indication: PROPHYLAXIS
     Dosage: TOTAL DAILY DOSE OF 200 MCG
     Route: 048
     Dates: start: 20010621
  6. RISEDRONIC ACID [Concomitant]
     Indication: OSTEOPOROSIS
     Dosage: TOTAL DAILY DOSE OF 2.5 MG
     Dates: start: 20020731
  7. ASPARTATE CALCIUM [Concomitant]
     Indication: OSTEOPOROSIS
     Dosage: TOTAL DAILY DOSE OF 1200 MG
     Dates: start: 20020731

REACTIONS (4)
  - DUODENAL ULCER [None]
  - FAECES DISCOLOURED [None]
  - HAEMOGLOBIN DECREASED [None]
  - HELICOBACTER INFECTION [None]
